FAERS Safety Report 12560090 (Version 1)
Quarter: 2016Q3

REPORT INFORMATION
  Report Type: Spontaneous
  Country: None (occurrence: None)
  Receive Date: 20160714
  Receipt Date: 20160714
  Transmission Date: 20161109
  Serious: No
  Sender: FDA-Public Use
  Company Number: None

PATIENT
  Age: 29 Year
  Sex: Female
  Weight: 52.62 kg

DRUGS (5)
  1. DAILY MV [Concomitant]
  2. VITAMIN C [Concomitant]
     Active Substance: ASCORBIC ACID
  3. FLUOXETINE [Concomitant]
     Active Substance: FLUOXETINE HYDROCHLORIDE
  4. GLUCOSAMINE WITH MSM [Concomitant]
  5. NITROFURANTOIN 100MG, 100 MG [Suspect]
     Active Substance: NITROFURANTOIN
     Indication: URINARY TRACT INFECTION
     Route: 048

REACTIONS (3)
  - Irritability [None]
  - Fatigue [None]
  - Muscle spasms [None]
